FAERS Safety Report 8792910 (Version 1)
Quarter: 2012Q4

REPORT INFORMATION
  Report Type: 
  Country: US (occurrence: US)
  Receive Date: 20120918
  Receipt Date: 20120918
  Transmission Date: 20130627
  Serious: No
  Sender: FDA-Public Use
  Company Number: US-PFIZER INC-2012228464

PATIENT

DRUGS (2)
  1. TOVIAZ [Suspect]
     Dosage: 4 mg, 1x/day
  2. TOVIAZ [Suspect]
     Dosage: UNK, every other day

REACTIONS (1)
  - Dry mouth [Unknown]
